FAERS Safety Report 17790273 (Version 2)
Quarter: 2020Q2

REPORT INFORMATION
  Report Type: Spontaneous
  Country: US (occurrence: US)
  Receive Date: 20200515
  Receipt Date: 20200529
  Transmission Date: 20200714
  Serious: No
  Sender: FDA-Public Use
  Company Number: US-AMGEN-USASP2020078126

PATIENT
  Sex: Female

DRUGS (1)
  1. AIMOVIG [Suspect]
     Active Substance: ERENUMAB-AOOE
     Indication: MIGRAINE
     Dosage: UNK UNK, QMO (EVERY 28 DAYS)
     Route: 065

REACTIONS (3)
  - Suspected COVID-19 [Not Recovered/Not Resolved]
  - Therapeutic product effect incomplete [Unknown]
  - Migraine [Unknown]
